FAERS Safety Report 21218208 (Version 1)
Quarter: 2022Q3

REPORT INFORMATION
  Report Type: Spontaneous
  Country: US (occurrence: None)
  Receive Date: 20220816
  Receipt Date: 20220816
  Transmission Date: 20221027
  Serious: No
  Sender: FDA-Public Use
  Company Number: None

PATIENT
  Age: 67 Year
  Sex: Female
  Weight: 85.28 kg

DRUGS (3)
  1. ROCKLATAN [Suspect]
     Active Substance: LATANOPROST\NETARSUDIL MESYLATE
     Indication: Glaucoma
     Dosage: FREQUENCY : AT BEDTIME;?
     Route: 061
     Dates: start: 20220718, end: 20220720
  2. MAGNESIUM [Concomitant]
     Active Substance: MAGNESIUM
  3. BENADRYL [Concomitant]
     Active Substance: DIPHENHYDRAMINE HYDROCHLORIDE

REACTIONS (3)
  - Diplopia [None]
  - Vision blurred [None]
  - Malaise [None]

NARRATIVE: CASE EVENT DATE: 20220720
